FAERS Safety Report 17087411 (Version 1)
Quarter: 2019Q4

REPORT INFORMATION
  Report Type: Spontaneous
  Country: CZ (occurrence: CZ)
  Receive Date: 20191128
  Receipt Date: 20191128
  Transmission Date: 20200122
  Serious: Yes (Death, Hospitalization, Other)
  Sender: FDA-Public Use
  Company Number: CZ-AMGEN-CZESP2019193847

PATIENT

DRUGS (1)
  1. CINACALCET HCL [Suspect]
     Active Substance: CINACALCET HYDROCHLORIDE
     Indication: HYPERPARATHYROIDISM SECONDARY
     Dosage: UNK
     Route: 065

REACTIONS (16)
  - Pneumonia [Fatal]
  - Syncope [Unknown]
  - Hypocalcaemia [Unknown]
  - Sepsis [Unknown]
  - Blood parathyroid hormone decreased [Unknown]
  - Dyspepsia [Unknown]
  - Hypertension [Unknown]
  - Cardiac failure [Unknown]
  - Therapeutic product effect decreased [Unknown]
  - General physical health deterioration [Unknown]
  - Transaminases increased [Unknown]
  - Nausea [Unknown]
  - Unevaluable event [Unknown]
  - Calcinosis [Unknown]
  - Abdominal pain [Unknown]
  - Vomiting [Unknown]
